FAERS Safety Report 14614270 (Version 2)
Quarter: 2018Q2

REPORT INFORMATION
  Report Type: Report from Study
  Country: US (occurrence: US)
  Receive Date: 20180308
  Receipt Date: 20180525
  Transmission Date: 20180711
  Serious: Yes (Death, Hospitalization, Other)
  Sender: FDA-Public Use
  Company Number: US-OTSUKA-2018_005785

PATIENT
  Age: 63 Year
  Sex: Male

DRUGS (2)
  1. TOLVAPTAN [Suspect]
     Active Substance: TOLVAPTAN
     Indication: HYPONATRAEMIA
     Dosage: UNK (RESTARTED)
     Route: 065
     Dates: end: 20171229
  2. TOLVAPTAN [Suspect]
     Active Substance: TOLVAPTAN
     Dosage: 15 MG, QD (1 TABLET DAILY)
     Route: 048
     Dates: start: 20170330

REACTIONS (9)
  - Encephalopathy [Unknown]
  - Alcohol withdrawal syndrome [Unknown]
  - Fibula fracture [Unknown]
  - Death [Fatal]
  - Tibia fracture [Unknown]
  - Hospice care [Unknown]
  - Mental status changes [Unknown]
  - Fall [Unknown]
  - Blood sodium increased [Unknown]

NARRATIVE: CASE EVENT DATE: 20180302
